FAERS Safety Report 7963337-5 (Version None)
Quarter: 2011Q4

REPORT INFORMATION
  Report Type: 
  Country: None (occurrence: None)
  Receive Date: 20111208
  Receipt Date: 20111129
  Transmission Date: 20120403
  Serious: Yes (Hospitalization, Other)
  Sender: FDA-Public Use
  Company Number: US-PAR PHARMACEUTICAL, INC-2011SCPR003463

PATIENT

DRUGS (3)
  1. METHYLPHENIDATE [Concomitant]
     Indication: PRODUCT USED FOR UNKNOWN INDICATION
     Dosage: UNK, UNKNOWN
     Route: 065
  2. CLONIDINE [Concomitant]
     Indication: PRODUCT USED FOR UNKNOWN INDICATION
     Dosage: UNK, UNKNOWN
     Route: 065
  3. FLUOXETINE [Suspect]
     Indication: PRODUCT USED FOR UNKNOWN INDICATION
     Dosage: 12 TABS OF 20 MG FLUOXETINE
     Route: 048

REACTIONS (12)
  - HYPERHIDROSIS [None]
  - INAPPROPRIATE ANTIDIURETIC HORMONE SECRETION [None]
  - HALLUCINATION [None]
  - APHASIA [None]
  - HAEMODYNAMIC INSTABILITY [None]
  - ACCIDENTAL EXPOSURE [None]
  - TACHYCARDIA [None]
  - MUSCLE RIGIDITY [None]
  - TREMOR [None]
  - HYPERTENSION [None]
  - VOMITING [None]
  - MYDRIASIS [None]
